FAERS Safety Report 14813894 (Version 1)
Quarter: 2018Q2

REPORT INFORMATION
  Report Type: Spontaneous
  Country: FR (occurrence: FR)
  Receive Date: 20180426
  Receipt Date: 20180426
  Transmission Date: 20180711
  Serious: Yes (Other)
  Sender: FDA-Public Use
  Company Number: FR-MERCK KGAA-2046575

PATIENT
  Age: 61 Year
  Sex: Female

DRUGS (1)
  1. NOVOTHYROX [Suspect]
     Active Substance: LEVOTHYROXINE SODIUM
     Indication: PRODUCT USED FOR UNKNOWN INDICATION

REACTIONS (20)
  - Diabetes mellitus inadequate control [None]
  - Gait disturbance [None]
  - Alopecia [None]
  - Tendonitis [None]
  - Deafness unilateral [None]
  - Cardiomyopathy [None]
  - Pain in extremity [None]
  - Personal relationship issue [None]
  - Visual impairment [None]
  - Carpal tunnel syndrome [None]
  - C-reactive protein increased [None]
  - Arthropathy [None]
  - Somnolence [None]
  - Creatinine urine increased [None]
  - Hypothyroidism [None]
  - Blood bicarbonate abnormal [None]
  - Muscle spasms [None]
  - Fatigue [None]
  - Blood thyroid stimulating hormone increased [None]
  - Social avoidant behaviour [None]

NARRATIVE: CASE EVENT DATE: 20170616
